FAERS Safety Report 6277810-1 (Version None)
Quarter: 2009Q3

REPORT INFORMATION
  Report Type: 
  Country: None (occurrence: None)
  Receive Date: 20090717
  Receipt Date: 20090717
  Transmission Date: 20100115
  Serious: Yes (Other)
  Sender: FDA-Public Use
  Company Number: None

PATIENT
  Age: 76 Year
  Sex: Female
  Weight: 77.1115 kg

DRUGS (1)
  1. MIRAPEX [Suspect]
     Indication: RESTLESS LEGS SYNDROME
     Dosage: 1 TABLET 2 HRS BEFORE BED/W
     Dates: start: 20090702, end: 20090714

REACTIONS (5)
  - DRUG INEFFECTIVE [None]
  - DYSPEPSIA [None]
  - FEAR [None]
  - NAUSEA [None]
  - SOMNOLENCE [None]
